FAERS Safety Report 11936233 (Version 1)
Quarter: 2016Q1

REPORT INFORMATION
  Report Type: Spontaneous
  Country: CA (occurrence: CA)
  Receive Date: 20160121
  Receipt Date: 20160121
  Transmission Date: 20160526
  Serious: Yes (Other)
  Sender: FDA-Public Use
  Company Number: CA-TEVA-627289ACC

PATIENT
  Age: 45 Year
  Sex: Male
  Weight: 75 kg

DRUGS (1)
  1. NOVO-BUPROPION SR TABLETS [Suspect]
     Active Substance: BUPROPION
     Indication: DEPRESSION
     Dosage: 150 MILLIGRAM DAILY;
     Route: 065

REACTIONS (4)
  - Swelling face [Recovered/Resolved]
  - Pruritus generalised [Recovered/Resolved]
  - Product substitution issue [Recovered/Resolved]
  - Peripheral swelling [Recovered/Resolved]
